FAERS Safety Report 9510211 (Version 1)
Quarter: 2013Q3

REPORT INFORMATION
  Report Type: Spontaneous
  Country: US (occurrence: US)
  Receive Date: 20130909
  Receipt Date: 20130909
  Transmission Date: 20140515
  Serious: No
  Sender: FDA-Public Use
  Company Number: US-BRISTOL-MYERS SQUIBB COMPANY-18707380

PATIENT
  Age: 73 Year
  Sex: Female
  Weight: 74.83 kg

DRUGS (1)
  1. ABILIFY [Suspect]
     Indication: DEPRESSION
     Dosage: LAST DOSE 20 MG ON 21-MAR-2013.?DOSE REDUCED TO 10 MG.
     Dates: start: 201208

REACTIONS (1)
  - Tremor [Unknown]
